FAERS Safety Report 12765632 (Version 5)
Quarter: 2016Q4

REPORT INFORMATION
  Report Type: Spontaneous
  Country: US (occurrence: US)
  Receive Date: 20160921
  Receipt Date: 20161201
  Transmission Date: 20170207
  Serious: No
  Sender: FDA-Public Use
  Company Number: US-PFIZER INC-2016436700

PATIENT
  Age: 65 Year
  Sex: Male
  Weight: 81 kg

DRUGS (11)
  1. GLIPIZIDE. [Concomitant]
     Active Substance: GLIPIZIDE
     Dosage: UNK
  2. SUTENT [Suspect]
     Active Substance: SUNITINIB MALATE
     Dosage: 25 MG, CYCLIC (TOTAL 28 DAYS ON/14 DAYS OFF) (TAKES 2-12.5MG CAPSULES)
     Dates: start: 20160816, end: 2016
  3. BABY ASPIRIN [Concomitant]
     Active Substance: ASPIRIN
     Dosage: UNK
  4. SUTENT [Suspect]
     Active Substance: SUNITINIB MALATE
     Indication: RENAL CANCER STAGE IV
     Dosage: 12.5 MG
     Dates: start: 201608, end: 2016
  5. SUTENT [Suspect]
     Active Substance: SUNITINIB MALATE
     Dosage: 12.5 MG, DAILY
  6. LISINOPRIL. [Concomitant]
     Active Substance: LISINOPRIL
     Dosage: UNK
  7. SUTENT [Suspect]
     Active Substance: SUNITINIB MALATE
     Dosage: 25 MG, CYCLIC (DAILY ALTERNATING EVERY 3-4 DAYS)
     Dates: start: 20160816
  8. SUTENT [Suspect]
     Active Substance: SUNITINIB MALATE
     Dosage: 37.5 MG, CYCLIC (37.5 MG DAILY FOR SAME 28DAYS ON / 14 DAYS OFF)
     Dates: start: 2016, end: 2016
  9. SUTENT [Suspect]
     Active Substance: SUNITINIB MALATE
     Dosage: 25MG (TAKES 2-12.5MG CAPSULES)
     Dates: start: 2016
  10. SUTENT [Suspect]
     Active Substance: SUNITINIB MALATE
     Dosage: 37.5 MG, CYCLIC (3WEEKS ON / 2WEEKS OFF)
     Dates: start: 20160816
  11. METOPROLOL. [Concomitant]
     Active Substance: METOPROLOL
     Dosage: UNK

REACTIONS (8)
  - Herpes zoster [Unknown]
  - Pain in extremity [Unknown]
  - Local swelling [Unknown]
  - Dysgeusia [Not Recovered/Not Resolved]
  - Decreased appetite [Unknown]
  - Ageusia [Unknown]
  - Tongue discomfort [Recovering/Resolving]
  - Blood glucose decreased [Unknown]
